FAERS Safety Report 6671785-9 (Version None)
Quarter: 2010Q2

REPORT INFORMATION
  Report Type: 
  Country: None (occurrence: None)
  Receive Date: 20100407
  Receipt Date: 20100401
  Transmission Date: 20101027
  Serious: Yes (Hospitalization, Other)
  Sender: FDA-Public Use
  Company Number: US-ASTRAZENECA-2010SE14398

PATIENT
  Age: 82 Year
  Sex: Female
  Weight: 51.3 kg

DRUGS (10)
  1. PULMICORT [Suspect]
     Indication: CHRONIC OBSTRUCTIVE PULMONARY DISEASE
     Dosage: BID
     Route: 055
     Dates: start: 20070101
  2. PRILOSEC [Concomitant]
     Route: 048
  3. ALBUTEROL [Concomitant]
  4. IPUTROPIUM [Concomitant]
  5. LORAZAPAN [Concomitant]
  6. LEVOTHYROXINE SODIUM [Concomitant]
  7. ALEVE (CAPLET) [Concomitant]
  8. ASPIRIN [Concomitant]
  9. COLACE [Concomitant]
  10. FIBER [Concomitant]

REACTIONS (3)
  - DIZZINESS [None]
  - GASTRIC INFECTION [None]
  - GASTROINTESTINAL HAEMORRHAGE [None]
